FAERS Safety Report 9721345 (Version 1)
Quarter: 2013Q4

REPORT INFORMATION
  Report Type: Spontaneous
  Country: US (occurrence: US)
  Receive Date: 20131129
  Receipt Date: 20131129
  Transmission Date: 20140711
  Serious: No
  Sender: FDA-Public Use
  Company Number: US-PFIZER INC-2013339608

PATIENT
  Sex: Female

DRUGS (3)
  1. ZOLOFT [Suspect]
     Dosage: 100 MG, UNK
  2. ZOLOFT [Suspect]
     Dosage: 150 MG, UNK
  3. ZOLOFT [Suspect]
     Dosage: 200 MG, UNK

REACTIONS (1)
  - Drug ineffective [Unknown]
